FAERS Safety Report 7371057-3 (Version None)
Quarter: 2011Q1

REPORT INFORMATION
  Report Type: 
  Country: None (occurrence: None)
  Receive Date: 20110318
  Receipt Date: 20110318
  Transmission Date: 20110831
  Serious: Yes (Other)
  Sender: FDA-Public Use
  Company Number: None

PATIENT
  Age: 59 Year
  Sex: Female

DRUGS (9)
  1. TRAZODONE HCL [Concomitant]
  2. CLOZAPINE [Suspect]
     Indication: SCHIZOPHRENIA
     Dosage: 100 MG BID PO
     Route: 048
     Dates: start: 20110114, end: 20110123
  3. AZITHROMYCIN [Concomitant]
  4. HYDROXYZINE [Concomitant]
  5. RISPERDONE [Concomitant]
  6. PAROXETINE HCL [Concomitant]
  7. HYDROCHLOROTHIAZIDE [Concomitant]
  8. PREDNISONE [Concomitant]
  9. AUGMENTIN [Concomitant]

REACTIONS (9)
  - PNEUMONIA [None]
  - TACHYCARDIA [None]
  - PRODUCT QUALITY ISSUE [None]
  - HYPERHIDROSIS [None]
  - COUGH [None]
  - ASTHENIA [None]
  - EAR INFECTION [None]
  - PRODUCT SUBSTITUTION ISSUE [None]
  - PYREXIA [None]
